FAERS Safety Report 4741781-7 (Version None)
Quarter: 2005Q3

REPORT INFORMATION
  Report Type: 
  Country: None (occurrence: None)
  Receive Date: 20050801
  Receipt Date: 20050622
  Transmission Date: 20060218
  Serious: No
  Sender: FDA-Public Use
  Company Number: 2005PV000124

PATIENT
  Age: 40 Year
  Sex: Female

DRUGS (3)
  1. BYETTA [Suspect]
     Dosage: 5 UG; SC
     Route: 058
     Dates: start: 20050601
  2. METFORMIN [Concomitant]
  3. AVANDIA [Concomitant]

REACTIONS (1)
  - NAUSEA [None]
